FAERS Safety Report 6804486-4 (Version None)
Quarter: 2010Q2

REPORT INFORMATION
  Report Type: 
  Country: None (occurrence: None)
  Receive Date: 20100628
  Receipt Date: 20070328
  Transmission Date: 20101027
  Serious: No
  Sender: FDA-Public Use
  Company Number: US-PFIZER INC-2007024918

PATIENT
  Sex: Female
  Weight: 68.04 kg

DRUGS (5)
  1. COVERA-HS [Suspect]
     Indication: HYPERTENSION
     Dates: start: 20060101
  2. PROMETRIUM [Concomitant]
  3. PREMARIN [Concomitant]
  4. VITAMINS [Concomitant]
  5. CALCIUM CARBONATE [Concomitant]

REACTIONS (2)
  - CONSTIPATION [None]
  - HYPOTENSION [None]
